FAERS Safety Report 13429908 (Version 1)
Quarter: 2017Q2

REPORT INFORMATION
  Report Type: Spontaneous
  Country: US (occurrence: US)
  Receive Date: 20170412
  Receipt Date: 20170412
  Transmission Date: 20170830
  Serious: Yes (Hospitalization, Other)
  Sender: FDA-Public Use
  Company Number: US-BRISTOL-MYERS SQUIBB COMPANY-BMS-2017-030073

PATIENT
  Age: 10 Year
  Sex: Male

DRUGS (1)
  1. ABILIFY [Suspect]
     Active Substance: ARIPIPRAZOLE
     Indication: IRRITABILITY
     Dosage: 2.5 MG, QD
     Route: 048
     Dates: start: 201606

REACTIONS (6)
  - Anxiety [Unknown]
  - Wrong technique in product usage process [Unknown]
  - Depression [Unknown]
  - Head injury [Unknown]
  - Suicidal ideation [Unknown]
  - Product use in unapproved indication [Unknown]
